FAERS Safety Report 5968332-3 (Version None)
Quarter: 2008Q4

REPORT INFORMATION
  Report Type: 
  Country: None (occurrence: None)
  Receive Date: 20081121
  Receipt Date: 20081121
  Transmission Date: 20090506
  Serious: Yes (Hospitalization)
  Sender: FDA-Public Use
  Company Number: None

PATIENT
  Age: 45 Year
  Sex: Female
  Weight: 93.8946 kg

DRUGS (2)
  1. JANUVIA [Suspect]
     Indication: COUGH
     Dosage: 100MG DAILY PO
     Route: 048
     Dates: start: 20080610, end: 20081020
  2. JANUVIA [Suspect]
     Indication: PYREXIA
     Dosage: 100MG DAILY PO
     Route: 048
     Dates: start: 20080610, end: 20081020

REACTIONS (6)
  - ABDOMINAL DISCOMFORT [None]
  - C-REACTIVE PROTEIN INCREASED [None]
  - COUGH [None]
  - PAIN [None]
  - PYREXIA [None]
  - WHITE BLOOD CELL COUNT INCREASED [None]
